FAERS Safety Report 24844843 (Version 3)
Quarter: 2025Q3

REPORT INFORMATION
  Report Type: Report from Study
  Country: JP (occurrence: JP)
  Receive Date: 20250115
  Receipt Date: 20250803
  Transmission Date: 20251020
  Serious: Yes (Other)
  Sender: ALEXION PHARMACEUTICALS
  Company Number: JP-ASTRAZENECA-202501JPN003186JP

PATIENT
  Age: 12 Year
  Sex: Male
  Weight: 20.85 kg

DRUGS (1)
  1. KOSELUGO [Suspect]
     Active Substance: SELUMETINIB
     Indication: Neurofibromatosis

REACTIONS (1)
  - Aortic valve incompetence [Unknown]

NARRATIVE: CASE EVENT DATE: 20231026
